FAERS Safety Report 17259009 (Version 1)
Quarter: 2020Q1

REPORT INFORMATION
  Report Type: Spontaneous
  Country: FR (occurrence: FR)
  Receive Date: 20200110
  Receipt Date: 20200110
  Transmission Date: 20200409
  Serious: Yes (Other)
  Sender: FDA-Public Use
  Company Number: FR-MYLANLABS-2020M1002684

PATIENT
  Age: 54 Year
  Sex: Female
  Weight: 38.4 kg

DRUGS (9)
  1. VANCOMYCINE SANDOZ [Suspect]
     Active Substance: VANCOMYCIN
     Indication: BACTERIAL INFECTION
     Dosage: 1.5 GRAM, QD
     Route: 042
     Dates: start: 20190819, end: 20190831
  2. BURINEX [Concomitant]
     Active Substance: BUMETANIDE
     Dosage: UNK
  3. PIPERACILLIN AND TAZOBACTAM [Suspect]
     Active Substance: PIPERACILLIN SODIUM\TAZOBACTAM SODIUM
     Indication: BACTERIAL INFECTION
     Dosage: 2 DOSAGE FORM, QD
     Route: 042
     Dates: start: 20190902, end: 20190904
  4. BOSENTAN MYLAN [Concomitant]
     Active Substance: BOSENTAN
     Dosage: UNK
  5. PREVISCAN                          /00261401/ [Concomitant]
     Active Substance: PENTOXIFYLLINE
     Dosage: UNK
  6. TALMANCO [Concomitant]
     Active Substance: TADALAFIL
     Dosage: UNK
  7. VELETRI [Concomitant]
     Active Substance: EPOPROSTENOL
     Dosage: UNK
  8. NORADRENALINE MYLAN [Concomitant]
     Active Substance: NOREPINEPHRINE\NOREPINEPHRINE BITARTRATE
     Dosage: UNK
  9. HEPARINE SODIQUE [Concomitant]
     Active Substance: HEPARIN SODIUM
     Dosage: UNK

REACTIONS (4)
  - Rash macular [Not Recovered/Not Resolved]
  - Purpura [Not Recovered/Not Resolved]
  - Thrombocytopenia [Not Recovered/Not Resolved]
  - Acute kidney injury [Recovering/Resolving]

NARRATIVE: CASE EVENT DATE: 20190830
